FAERS Safety Report 8506330-6 (Version None)
Quarter: 2012Q3

REPORT INFORMATION
  Report Type: 
  Country: None (occurrence: None)
  Receive Date: 20120712
  Receipt Date: 20120709
  Transmission Date: 20120928
  Serious: Yes (Hospitalization)
  Sender: FDA-Public Use
  Company Number: KR-ROCHE-1085930

PATIENT
  Sex: Male
  Weight: 70 kg

DRUGS (2)
  1. OXALIPLATIN [Suspect]
     Indication: RECTAL CANCER
     Dosage: DATE OF LAST DOSE PRIOR TO SAE: 27/JAN/2011
     Route: 042
     Dates: start: 20101230
  2. XELODA [Suspect]
     Indication: RECTAL CANCER
     Dosage: DATE OF LAST DOSE PRIOR TO SAE: 07/FEB/2011
     Route: 048
     Dates: start: 20101230

REACTIONS (1)
  - POST PROCEDURAL HAEMORRHAGE [None]
